FAERS Safety Report 5913670-3 (Version None)
Quarter: 2008Q4

REPORT INFORMATION
  Report Type: 
  Country: None (occurrence: None)
  Receive Date: 20081009
  Receipt Date: 20080930
  Transmission Date: 20090506
  Serious: Yes (Hospitalization)
  Sender: FDA-Public Use
  Company Number: US-AMGEN-US308229

PATIENT
  Sex: Male

DRUGS (10)
  1. ROMIPLOSTIM [Suspect]
     Indication: IDIOPATHIC THROMBOCYTOPENIC PURPURA
     Route: 058
     Dates: start: 20080318
  2. ATENOLOL [Concomitant]
  3. LISINOPRIL [Concomitant]
  4. AMLODIPINE [Concomitant]
  5. ACTOS [Concomitant]
  6. OMEPRAZOLE [Concomitant]
  7. SIMVASTATIN [Concomitant]
  8. LANTUS [Concomitant]
  9. DARVOCET-N 100 [Concomitant]
  10. GLUCOSAMINE W/CHONDROITIN SULFATES [Concomitant]

REACTIONS (2)
  - ABDOMINAL PAIN [None]
  - DIARRHOEA [None]
